FAERS Safety Report 9780780 (Version 2)
Quarter: 2014Q1

REPORT INFORMATION
  Report Type: Spontaneous
  Country: JP (occurrence: JP)
  Receive Date: 20131224
  Receipt Date: 20140110
  Transmission Date: 20141002
  Serious: Yes (Other)
  Sender: FDA-Public Use
  Company Number: JP-BAYER-2013-156631

PATIENT
  Age: 88 Year
  Sex: Female
  Weight: 39 kg

DRUGS (10)
  1. XARELTO [Suspect]
     Indication: ATRIAL FIBRILLATION
     Dosage: 10 MG, OM
     Route: 048
     Dates: start: 20131203
  2. XARELTO [Suspect]
     Indication: CEREBROVASCULAR ACCIDENT PROPHYLAXIS
  3. BAYASPIRIN [Concomitant]
     Indication: CARDIAC DISORDER
     Dosage: 100 MG, OM
     Route: 048
     Dates: start: 20131203
  4. PLAVIX [Concomitant]
     Indication: CARDIAC DISORDER
     Dosage: UNK
     Route: 048
  5. LANIRAPID [Concomitant]
     Indication: ATRIAL FIBRILLATION
     Dosage: 0.05 MG, OM
     Route: 048
     Dates: start: 20131203
  6. SELARA [Concomitant]
     Dosage: 25 MG, OM
     Route: 048
     Dates: start: 20131203
  7. CALFINA AMEL [Concomitant]
     Dosage: 0.5 ?G, OM
     Route: 048
     Dates: start: 20131203
  8. RABEPRAZOLE SODIUM [Concomitant]
     Dosage: 10 MG, OM
     Route: 048
     Dates: start: 20131203
  9. ALFAROL [Concomitant]
     Indication: OSTEOPOROSIS
     Dosage: 0.500 ?G, QD
     Route: 048
  10. OMEPRAL [Concomitant]
     Indication: GASTRIC DISORDER
     Dosage: UNK
     Route: 048

REACTIONS (2)
  - Pulmonary congestion [Recovering/Resolving]
  - Brain natriuretic peptide increased [Recovering/Resolving]
